FAERS Safety Report 4659021-6 (Version None)
Quarter: 2005Q2

REPORT INFORMATION
  Report Type: 
  Country: None (occurrence: None)
  Receive Date: 20050511
  Receipt Date: 20050329
  Transmission Date: 20051028
  Serious: Yes (Hospitalization)
  Sender: FDA-Public Use
  Company Number: FR-GLAXOSMITHKLINE-B0377204A

PATIENT
  Age: 41 Year
  Sex: Male

DRUGS (11)
  1. COMBIVIR [Suspect]
     Indication: HIV INFECTION
     Dosage: 1TAB TWICE PER DAY
     Route: 048
     Dates: start: 20040101, end: 20050301
  2. KALETRA [Suspect]
     Indication: HIV INFECTION
     Dosage: 3CAP TWICE PER DAY
     Route: 048
     Dates: start: 20040101, end: 20050301
  3. DALACINE [Suspect]
     Indication: PROPHYLAXIS
     Route: 048
     Dates: end: 20050301
  4. MALOCIDE [Suspect]
     Indication: PROPHYLAXIS
     Route: 048
     Dates: end: 20050301
  5. ROCEPHIN [Suspect]
     Indication: URINARY TRACT INFECTION
     Route: 042
     Dates: end: 20050201
  6. ZITHROMAX [Suspect]
     Indication: URINARY TRACT INFECTION
     Route: 048
     Dates: end: 20050201
  7. OFLOCET [Suspect]
     Indication: URINARY TRACT INFECTION
     Route: 065
     Dates: end: 20050301
  8. PENTACARINAT [Suspect]
     Indication: INFECTION PROPHYLAXIS
     Dosage: 1UNIT MONTHLY
     Route: 055
  9. OSFOLATE [Suspect]
     Route: 048
  10. UNSPECIFIED DRUGS [Suspect]
     Indication: URINARY TRACT INFECTION
     Route: 065
  11. PHYTOTHERAPY [Concomitant]
     Route: 048

REACTIONS (3)
  - HAEMATURIA [None]
  - NEUTROPENIA [None]
  - PANCYTOPENIA [None]
